FAERS Safety Report 13961315 (Version 1)
Quarter: 2017Q3

REPORT INFORMATION
  Report Type: Report from Study
  Country: US (occurrence: US)
  Receive Date: 20170912
  Receipt Date: 20170912
  Transmission Date: 20171128
  Serious: Yes (Death, Other)
  Sender: FDA-Public Use
  Company Number: US-BAYER-2017-170203

PATIENT
  Age: 72 Year
  Sex: Female

DRUGS (1)
  1. STIVARGA [Suspect]
     Active Substance: REGORAFENIB
     Dosage: 160 MG, QD
     Route: 048
     Dates: start: 20170828, end: 20170828

REACTIONS (5)
  - Hypotension [None]
  - Vomiting [None]
  - Seizure [None]
  - Death [Fatal]
  - Abdominal pain [None]

NARRATIVE: CASE EVENT DATE: 20170828
